FAERS Safety Report 4406460-4 (Version None)
Quarter: 2004Q3

REPORT INFORMATION
  Report Type: 
  Country: None (occurrence: None)
  Receive Date: 20040723
  Receipt Date: 20040719
  Transmission Date: 20050211
  Serious: Yes (Other)
  Sender: FDA-Public Use
  Company Number: DE-MERCK-0407DEU00156

PATIENT
  Sex: Male

DRUGS (2)
  1. PRIMAXIN [Suspect]
     Indication: POSTOPERATIVE INFECTION
     Route: 041
     Dates: start: 20040601, end: 20040701
  2. FOSFOMYCIN [Concomitant]
     Route: 041
     Dates: start: 20040601, end: 20040101

REACTIONS (3)
  - BLOOD ALKALINE PHOSPHATASE INCREASED [None]
  - BLOOD BILIRUBIN INCREASED [None]
  - GAMMA-GLUTAMYLTRANSFERASE INCREASED [None]
